FAERS Safety Report 17107695 (Version 1)
Quarter: 2019Q4

REPORT INFORMATION
  Report Type: Report from Study
  Country: CA (occurrence: CA)
  Receive Date: 20191203
  Receipt Date: 20191203
  Transmission Date: 20200122
  Serious: Yes (Other)
  Sender: FDA-Public Use
  Company Number: CA-JNJFOC-20191139189

PATIENT
  Age: 39 Year
  Sex: Female
  Weight: 96 kg

DRUGS (3)
  1. SALOFALK [Concomitant]
     Indication: COLITIS ULCERATIVE
     Route: 048
     Dates: start: 20190529
  2. TECTA [Concomitant]
     Active Substance: PANTOPRAZOLE MAGNESIUM
     Indication: GASTRITIS
     Dosage: PER ORAL ROUTE, AS NEEDED
     Route: 048
     Dates: start: 20190305
  3. REMICADE [Suspect]
     Active Substance: INFLIXIMAB
     Indication: COLITIS ULCERATIVE
     Route: 042
     Dates: start: 20190325

REACTIONS (6)
  - Frequent bowel movements [Unknown]
  - Mucous stools [Not Recovered/Not Resolved]
  - Abdominal tenderness [Unknown]
  - Product use issue [Unknown]
  - Haematochezia [Not Recovered/Not Resolved]
  - Off label use [Unknown]

NARRATIVE: CASE EVENT DATE: 20190325
